FAERS Safety Report 5206357-6 (Version None)
Quarter: 2006Q4

REPORT INFORMATION
  Report Type: 
  Country: None (occurrence: None)
  Receive Date: 20061026
  Receipt Date: 20060822
  Transmission Date: 20070319
  Serious: Yes (Other)
  Sender: FDA-Public Use
  Company Number: 2006102411

PATIENT
  Age: 67 Year
  Sex: Male
  Weight: 70.7611 kg

DRUGS (4)
  1. LYRICA [Suspect]
     Indication: DIABETIC NEUROPATHY
     Dosage: 150 MG (75 MG, 2 IN 1 D), ORAL
     Route: 048
     Dates: start: 20060701
  2. METFORMIN HCL [Concomitant]
  3. VICODIN [Concomitant]
  4. XANAX [Concomitant]

REACTIONS (6)
  - ADVERSE EVENT [None]
  - DRY MOUTH [None]
  - ERECTILE DYSFUNCTION [None]
  - INSOMNIA [None]
  - PARAESTHESIA [None]
  - URINARY RETENTION [None]
